FAERS Safety Report 17818552 (Version 2)
Quarter: 2020Q2

REPORT INFORMATION
  Report Type: Spontaneous
  Country: US (occurrence: US)
  Receive Date: 20200522
  Receipt Date: 20200610
  Transmission Date: 20200714
  Serious: Yes (Death, Life-Threatening, Other)
  Sender: FDA-Public Use
  Company Number: US-GILEAD-2020-0468312

PATIENT
  Age: 72 Year
  Sex: Female
  Weight: 92.3 kg

DRUGS (34)
  1. POTASSIUM CHLORIDE. [Concomitant]
     Active Substance: POTASSIUM CHLORIDE
  2. PRISMASATE BK0/3.5 [Concomitant]
  3. EPINEPHRINE. [Concomitant]
     Active Substance: EPINEPHRINE
  4. MELATONIN [Concomitant]
     Active Substance: MELATONIN
  5. REMDESIVIR. [Suspect]
     Active Substance: REMDESIVIR
     Indication: COVID-19
     Dosage: 100 MG, QD
     Route: 042
     Dates: start: 20200513, end: 20200516
  6. ONDANSETRON [Concomitant]
     Active Substance: ONDANSETRON
  7. PRISMASOL [Concomitant]
     Active Substance: DEXTROSE\LACTIC ACID\MAGNESIUM CL\POTASSIUM CL\SODIUM BICARBONATE\SODIUM CL
  8. VITAMIN B12 AAA [Concomitant]
  9. CISATRACURIUM. [Concomitant]
     Active Substance: CISATRACURIUM
  10. NORMOSOL-R [Concomitant]
     Active Substance: MAGNESIUM CHLORIDE\POTASSIUM CHLORIDE\SODIUM ACETATE ANHYDROUS\SODIUM CHLORIDE\SODIUM GLUCONATE
  11. LORAZEPAM. [Concomitant]
     Active Substance: LORAZEPAM
  12. PHENYLEPHRINE [Concomitant]
     Active Substance: PHENYLEPHRINE HYDROCHLORIDE
  13. CHLORHEXIDINE [Concomitant]
     Active Substance: CHLORHEXIDINE
  14. NOREPINEPHRINE. [Concomitant]
     Active Substance: NOREPINEPHRINE
  15. SODIUM CHLORIDE. [Concomitant]
     Active Substance: SODIUM CHLORIDE
  16. CEFEPIME [Concomitant]
     Active Substance: CEFEPIME HYDROCHLORIDE
  17. FENTANYL. [Concomitant]
     Active Substance: FENTANYL
  18. ENOXAPARIN [Concomitant]
     Active Substance: ENOXAPARIN
  19. HYDROXYCHLOROQUINE [Concomitant]
     Active Substance: HYDROXYCHLOROQUINE
  20. LACTATED RINGERS SOLUTION [Concomitant]
     Active Substance: CALCIUM CHLORIDE\POTASSIUM CHLORIDE\SODIUM CHLORIDE\SODIUM LACTATE
  21. CONVALESCENT PLASMA [Concomitant]
     Active Substance: HUMAN PLASMA
     Indication: COVID-19
     Dosage: UNK
     Dates: start: 20200510, end: 20200510
  22. PANTOPRAZOLE [Concomitant]
     Active Substance: PANTOPRAZOLE
  23. PROPOFOL. [Concomitant]
     Active Substance: PROPOFOL
  24. VASOPRESSIN. [Concomitant]
     Active Substance: VASOPRESSIN
  25. IOPAMIDOL [Concomitant]
     Active Substance: IOPAMIDOL
  26. METOPROLOL TARTRATE. [Concomitant]
     Active Substance: METOPROLOL TARTRATE
  27. SCOPOLAMINE AMINOXIDE [Concomitant]
     Active Substance: SCOPOLAMINE N-OXIDE
  28. VANCOMYCIN [Concomitant]
     Active Substance: VANCOMYCIN
     Dosage: UNK
     Dates: start: 20200510, end: 20200510
  29. ZINC SULFATE. [Concomitant]
     Active Substance: ZINC SULFATE
  30. DEXMEDETOMIDINE. [Concomitant]
     Active Substance: DEXMEDETOMIDINE
  31. POTASSIUM PHOSPHATE DIBASIC [Concomitant]
     Active Substance: POTASSIUM PHOSPHATE, DIBASIC
  32. HEPARIN [Concomitant]
     Active Substance: HEPARIN SODIUM
  33. MAGNESIUM SULFATE. [Concomitant]
     Active Substance: MAGNESIUM SULFATE
  34. MORPHINE [Concomitant]
     Active Substance: MORPHINE

REACTIONS (4)
  - Hypoxia [Fatal]
  - Shock [Fatal]
  - Respiratory failure [Fatal]
  - Acute kidney injury [Fatal]

NARRATIVE: CASE EVENT DATE: 20200516
